FAERS Safety Report 6793146-4 (Version None)
Quarter: 2010Q2

REPORT INFORMATION
  Report Type: 
  Country: None (occurrence: None)
  Receive Date: 20100624
  Receipt Date: 20090729
  Transmission Date: 20101027
  Serious: Yes (Other)
  Sender: FDA-Public Use
  Company Number: US-MYLANLABS-2009S1010175

PATIENT
  Age: 22 Year
  Sex: Male
  Weight: 204.12 kg

DRUGS (13)
  1. CLOZAPINE [Suspect]
     Indication: SCHIZOPHRENIA
     Dosage: 3 TABLETS HS
     Route: 048
     Dates: start: 20080425, end: 20090603
  2. CLOZAPINE [Suspect]
     Route: 048
  3. CLOZAPINE [Suspect]
     Route: 048
     Dates: start: 20080425, end: 20090603
  4. CLOZAPINE [Suspect]
     Route: 048
  5. DEPAKOTE ER [Concomitant]
     Dosage: 1000MG QAM, 1500MG QHS
     Route: 048
  6. WELLBUTRIN [Concomitant]
  7. LEVOTHYROXINE [Concomitant]
  8. SIMVASTATIN [Concomitant]
  9. PREVACID [Concomitant]
  10. GEMFIBROZIL [Concomitant]
  11. HYDROCHLOROTHIAZIDE [Concomitant]
  12. LISINOPRIL [Concomitant]
  13. METFORMIN HCL [Concomitant]

REACTIONS (2)
  - GRANULOCYTOPENIA [None]
  - LEUKOPENIA [None]
